FAERS Safety Report 24233104 (Version 1)
Quarter: 2024Q3

REPORT INFORMATION
  Report Type: Spontaneous
  Country: CN (occurrence: CN)
  Receive Date: 20240821
  Receipt Date: 20240821
  Transmission Date: 20241017
  Serious: Yes (Life-Threatening, Other)
  Sender: BAYER
  Company Number: CN-BAYER-2024A120168

PATIENT
  Age: 35 Year
  Sex: Female
  Weight: 60 kg

DRUGS (1)
  1. ULTRAVIST [Suspect]
     Active Substance: IOPROMIDE
     Indication: Imaging procedure
     Dosage: 75 MG, ONCE
     Route: 042
     Dates: start: 20240705, end: 20240705

REACTIONS (6)
  - Contrast media allergy [Recovering/Resolving]
  - Chest discomfort [Recovering/Resolving]
  - Vision blurred [Recovering/Resolving]
  - Dizziness [Recovering/Resolving]
  - Hyperhidrosis [Recovering/Resolving]
  - Vomiting [Recovering/Resolving]

NARRATIVE: CASE EVENT DATE: 20240705
